FAERS Safety Report 19595805 (Version 2)
Quarter: 2021Q3

REPORT INFORMATION
  Report Type: Report from Study
  Country: PA (occurrence: PA)
  Receive Date: 20210722
  Receipt Date: 20210826
  Transmission Date: 20211014
  Serious: Yes (Other)
  Sender: FDA-Public Use
  Company Number: NVSC2021PA104246

PATIENT
  Age: 77 Year
  Sex: Female
  Weight: 37 kg

DRUGS (5)
  1. FULVESTRANT. [Suspect]
     Active Substance: FULVESTRANT
     Indication: PRODUCT USED FOR UNKNOWN INDICATION
     Route: 065
  2. KISQALI [Suspect]
     Active Substance: RIBOCICLIB
     Dosage: UNK (DISCONTINUED UNTIL 25 JUN WHEN SHE HAS NEXT APPOINTMENT)
     Route: 065
  3. KISQALI [Suspect]
     Active Substance: RIBOCICLIB
     Dosage: 400 MG (2 TABLETS), QD (ONCE DAILY AT NOON)
     Route: 048
  4. KISQALI [Suspect]
     Active Substance: RIBOCICLIB
     Indication: BREAST CANCER METASTATIC
     Dosage: 600 MG, QD
     Route: 048
     Dates: start: 20210408, end: 20210423
  5. KISQALI [Suspect]
     Active Substance: RIBOCICLIB
     Dosage: UNK (TOOK IN FOR 2 WEEKS IN MAY)
     Route: 065
     Dates: start: 202105, end: 202105

REACTIONS (9)
  - Dysgeusia [Unknown]
  - Hepatomegaly [Unknown]
  - Metastases to spine [Unknown]
  - Underweight [Unknown]
  - Discomfort [Unknown]
  - Transaminases abnormal [Unknown]
  - Metastases to liver [Unknown]
  - Decreased appetite [Unknown]
  - Decreased immune responsiveness [Recovering/Resolving]

NARRATIVE: CASE EVENT DATE: 20210423
